FAERS Safety Report 7518620-4 (Version None)
Quarter: 2011Q2

REPORT INFORMATION
  Report Type: 
  Country: None (occurrence: None)
  Receive Date: 20110602
  Receipt Date: 20110523
  Transmission Date: 20111010
  Serious: Yes (Other)
  Sender: FDA-Public Use
  Company Number: US-AMGEN-USASP2011026734

PATIENT
  Age: 46 Year
  Sex: Female

DRUGS (2)
  1. ENBREL [Suspect]
     Indication: RHEUMATOID ARTHRITIS
     Dosage: 50 MG, QWK
     Dates: start: 20010101, end: 20110401
  2. PLAQUENIL [Concomitant]
     Dosage: 2 MG, QD
     Dates: start: 20010101

REACTIONS (8)
  - CATARACT [None]
  - ARTHRALGIA [None]
  - TOOTH ABSCESS [None]
  - RAYNAUD'S PHENOMENON [None]
  - SKIN ULCER [None]
  - SCLERODERMA [None]
  - VISUAL ACUITY REDUCED [None]
  - INFECTED SKIN ULCER [None]
